FAERS Safety Report 6405022-7 (Version None)
Quarter: 2009Q4

REPORT INFORMATION
  Report Type: 
  Country: None (occurrence: None)
  Receive Date: 20091019
  Receipt Date: 20091008
  Transmission Date: 20100525
  Serious: Yes (Hospitalization)
  Sender: FDA-Public Use
  Company Number: US-JNJFOC-20091004103

PATIENT
  Sex: Female
  Weight: 40.37 kg

DRUGS (1)
  1. REMICADE [Suspect]
     Indication: CROHN'S DISEASE
     Route: 042
     Dates: start: 20030101

REACTIONS (4)
  - CROHN'S DISEASE [None]
  - DYSPNOEA [None]
  - ERYTHEMA [None]
  - ULCER [None]
